FAERS Safety Report 9981046 (Version 1)
Quarter: 2014Q1

REPORT INFORMATION
  Report Type: Spontaneous
  Country: US (occurrence: US)
  Receive Date: 20140307
  Receipt Date: 20140307
  Transmission Date: 20141002
  Serious: Yes (Death)
  Sender: FDA-Public Use
  Company Number: US-PFIZER INC-2014062622

PATIENT
  Age: 67 Year
  Sex: Male

DRUGS (1)
  1. XALKORI [Suspect]
     Indication: NEOPLASM MALIGNANT
     Dosage: 200 MG, TWICE DAILY
     Dates: start: 20130611

REACTIONS (2)
  - Disease progression [Fatal]
  - Neoplasm malignant [Fatal]
